FAERS Safety Report 24811155 (Version 1)
Quarter: 2025Q1

REPORT INFORMATION
  Report Type: Spontaneous
  Country: CN (occurrence: CN)
  Receive Date: 20250106
  Receipt Date: 20250106
  Transmission Date: 20250409
  Serious: Yes (Hospitalization)
  Sender: GLAXOSMITHKLINE
  Company Number: CN-GSK-CN2024APC165220

PATIENT

DRUGS (2)
  1. LAMOTRIGINE [Suspect]
     Active Substance: LAMOTRIGINE
     Indication: Epilepsy
     Dosage: 50 MG, QD
     Route: 048
     Dates: start: 20241103, end: 20241127
  2. RISPERIDONE [Suspect]
     Active Substance: RISPERIDONE
     Indication: Schizophrenia
     Dosage: 1 DF, QD
     Route: 048
     Dates: start: 20241103, end: 20241127

REACTIONS (10)
  - Dermatitis [Recovering/Resolving]
  - Drug eruption [Recovering/Resolving]
  - Dry throat [Recovering/Resolving]
  - Bowel movement irregularity [Recovering/Resolving]
  - Epstein-Barr virus infection [Recovering/Resolving]
  - Hepatic steatosis [Recovering/Resolving]
  - Sleep disorder due to a general medical condition [Recovering/Resolving]
  - Upper respiratory tract congestion [Recovering/Resolving]
  - Palate injury [Recovering/Resolving]
  - Prescription drug used without a prescription [Unknown]

NARRATIVE: CASE EVENT DATE: 20241103
